FAERS Safety Report 9369459 (Version 4)
Quarter: 2013Q3

REPORT INFORMATION
  Report Type: Spontaneous
  Country: US (occurrence: US)
  Receive Date: 20130626
  Receipt Date: 20130919
  Transmission Date: 20140515
  Serious: Yes (Other)
  Sender: FDA-Public Use
  Company Number: US-ROCHE-1241566

PATIENT
  Age: 75 Year
  Sex: Female

DRUGS (11)
  1. LUCENTIS [Suspect]
     Indication: AGE-RELATED MACULAR DEGENERATION
     Dosage: 0.5 MG INTRAOCULAR INJECTION IN ONE EYE
     Route: 031
     Dates: start: 20130620
  2. VIGAMOX [Concomitant]
     Route: 050
     Dates: start: 20130622
  3. PRED FORTE [Concomitant]
     Indication: INFLAMMATION
     Route: 047
     Dates: start: 20130622
  4. SOLIFENACIN SUCCINATE [Concomitant]
     Indication: HYPERTONIC BLADDER
     Route: 048
     Dates: start: 20130628
  5. ISOSORBIDE DINITRATE [Concomitant]
     Indication: ANGINA PECTORIS
     Route: 048
     Dates: start: 20130628
  6. FOLTRATE [Concomitant]
     Route: 048
     Dates: start: 20130628
  7. DONEPEZIL HCL [Concomitant]
     Indication: DEMENTIA
     Route: 048
     Dates: start: 20130628
  8. CRESTOR [Concomitant]
     Indication: BLOOD CHOLESTEROL
     Route: 048
     Dates: start: 20130628
  9. BYSTOLIC [Concomitant]
     Indication: BLOOD PRESSURE
     Route: 048
     Dates: start: 20130628
  10. ASA [Concomitant]
     Route: 048
     Dates: start: 20130628
  11. APLENZIN [Concomitant]
     Route: 048
     Dates: start: 20130628

REACTIONS (6)
  - Vitritis [Recovering/Resolving]
  - Non-infectious endophthalmitis [Unknown]
  - Vision blurred [Unknown]
  - Vitreous floaters [Unknown]
  - Pain [Unknown]
  - Product quality issue [Unknown]
